FAERS Safety Report 15713703 (Version 4)
Quarter: 2019Q2

REPORT INFORMATION
  Report Type: Spontaneous
  Country: JP (occurrence: JP)
  Receive Date: 20181212
  Receipt Date: 20190409
  Transmission Date: 20190711
  Serious: Yes (Hospitalization)
  Sender: FDA-Public Use
  Company Number: JP-PFIZER INC-2018506653

PATIENT
  Age: 93 Year
  Sex: Female
  Weight: 55 kg

DRUGS (12)
  1. E KEPPRA [Suspect]
     Active Substance: LEVETIRACETAM
     Indication: PARTIAL SEIZURES WITH SECONDARY GENERALISATION
     Dosage: 1000 MG, 1X/DAY
     Dates: start: 20171127, end: 20171214
  2. FYCOMPA [Suspect]
     Active Substance: PERAMPANEL
     Dosage: 4 MG, 1X/DAY
     Dates: start: 20171222
  3. E KEPPRA [Suspect]
     Active Substance: LEVETIRACETAM
     Dosage: 1000 MG, 1X/DAY
     Dates: start: 20171215
  4. EXCEGRAN [Suspect]
     Active Substance: ZONISAMIDE
     Indication: PARTIAL SEIZURES WITH SECONDARY GENERALISATION
     Dosage: 200 MG, 1X/DAY
     Route: 048
     Dates: start: 20171207, end: 20171208
  5. HISHIPHAGEN C [Concomitant]
     Dosage: 20 ML, 1X/DAY
     Dates: start: 20171208, end: 20171221
  6. FYCOMPA [Suspect]
     Active Substance: PERAMPANEL
     Dosage: 2 MG, 1X/DAY
     Dates: start: 20171128, end: 20171204
  7. FYCOMPA [Suspect]
     Active Substance: PERAMPANEL
     Dosage: 6 MG, 1X/DAY
     Dates: start: 20171212, end: 20171221
  8. PHENOBAL [PHENOBARBITAL] [Suspect]
     Active Substance: PHENOBARBITAL
     Dosage: 100 MG, 1X/DAY
     Dates: start: 20171128, end: 20171201
  9. FOSTOIN [Suspect]
     Active Substance: FOSPHENYTOIN SODIUM
     Indication: PARTIAL SEIZURES WITH SECONDARY GENERALISATION
     Dosage: 750 MG, 1X/DAY
     Dates: start: 20171201, end: 20171201
  10. FOSTOIN [Suspect]
     Active Substance: FOSPHENYTOIN SODIUM
     Dosage: 375 MG, 1X/DAY
     Dates: start: 20171202, end: 20171211
  11. PHENOBAL [PHENOBARBITAL] [Suspect]
     Active Substance: PHENOBARBITAL
     Indication: PARTIAL SEIZURES WITH SECONDARY GENERALISATION
     Dosage: 100 MG, 1X/DAY
     Dates: start: 20171126, end: 20171126
  12. FYCOMPA [Suspect]
     Active Substance: PERAMPANEL
     Dosage: 4 MG, 1X/DAY
     Dates: start: 20171205, end: 20171211

REACTIONS (4)
  - Cardiac failure congestive [Recovered/Resolved]
  - Blood urea increased [Recovered/Resolved]
  - Weight decreased [Not Recovered/Not Resolved]
  - Hepatic function abnormal [Recovered/Resolved]

NARRATIVE: CASE EVENT DATE: 201712
